FAERS Safety Report 5951950-6 (Version None)
Quarter: 2008Q4

REPORT INFORMATION
  Report Type: 
  Country: None (occurrence: None)
  Receive Date: 20081113
  Receipt Date: 20070926
  Transmission Date: 20090506
  Serious: No
  Sender: FDA-Public Use
  Company Number: A0684363A

PATIENT
  Age: 55 Year
  Sex: Female

DRUGS (12)
  1. COREG [Suspect]
     Dosage: 50MG TWICE PER DAY
     Route: 048
     Dates: start: 20040801, end: 20070801
  2. ALDACTONE [Concomitant]
  3. FOLIC ACID [Concomitant]
  4. POTASSIUM CHLORIDE [Concomitant]
  5. VYTORIN [Concomitant]
  6. PLAVIX [Concomitant]
  7. LISINOPRIL [Concomitant]
  8. DEMADEX [Concomitant]
  9. MIRAPEX [Concomitant]
  10. PERCOCET [Concomitant]
  11. NITROGLYCERIN [Concomitant]
  12. ROBAXIN [Concomitant]

REACTIONS (2)
  - FATIGUE [None]
  - HYPERSOMNIA [None]
